FAERS Safety Report 4310176-2 (Version None)
Quarter: 2004Q1

REPORT INFORMATION
  Report Type: 
  Country: None (occurrence: None)
  Receive Date: 20040301
  Receipt Date: 20031203
  Transmission Date: 20041129
  Serious: No
  Sender: FDA-Public Use
  Company Number: WAES 0312USA00554

PATIENT
  Age: 63 Year
  Sex: Male
  Weight: 92.0802 kg

DRUGS (7)
  1. ZETIA [Suspect]
     Indication: CORONARY ARTERY DISEASE
     Dosage: 10 MG/DAILY/PO
     Route: 048
     Dates: start: 20031120, end: 20031202
  2. ZETIA [Suspect]
     Indication: HYPERLIPIDAEMIA
     Dosage: 10 MG/DAILY/PO
     Route: 048
     Dates: start: 20031120, end: 20031202
  3. LIPITOR [Concomitant]
  4. LOTENSIN [Concomitant]
  5. TOPROL-XL [Concomitant]
  6. AMIODARONE [Concomitant]
  7. ASPIRIN [Concomitant]

REACTIONS (4)
  - MALAISE [None]
  - MYALGIA [None]
  - NAUSEA [None]
  - VOMITING [None]
